FAERS Safety Report 7044564-0 (Version None)
Quarter: 2010Q4

REPORT INFORMATION
  Report Type: 
  Country: None (occurrence: None)
  Receive Date: 20101014
  Receipt Date: 20101004
  Transmission Date: 20110411
  Serious: Yes (Hospitalization, Other)
  Sender: FDA-Public Use
  Company Number: GB-NOVOPROD-315999

PATIENT
  Age: 56 Year
  Sex: Female
  Weight: 102 kg

DRUGS (9)
  1. VICTOZA [Suspect]
     Indication: DIABETES MELLITUS
     Dosage: 1.2 MG, QD
     Route: 058
     Dates: start: 20091001, end: 20100901
  2. AMLODIPINE [Concomitant]
     Dosage: 5 MG, QD
  3. ASPIRIN [Concomitant]
     Dosage: 75 MG, QD
  4. COAPROVEL [Concomitant]
     Route: 048
  5. DOSULEPIN [Concomitant]
     Dosage: 150 MG, QD
  6. METFORMIN [Concomitant]
     Dosage: 1000 MG, BID
  7. SALBUTAMOL [Concomitant]
     Route: 055
  8. SERETIDE                           /01420901/ [Concomitant]
     Dosage: 1 UNK, BID
     Route: 055
  9. SIMVASTATIN [Concomitant]
     Dosage: 20 MG, QD

REACTIONS (5)
  - ABDOMINAL PAIN [None]
  - BLOOD AMYLASE INCREASED [None]
  - C-REACTIVE PROTEIN INCREASED [None]
  - PANCREATITIS [None]
  - WHITE BLOOD CELL COUNT INCREASED [None]
